FAERS Safety Report 25690756 (Version 1)
Quarter: 2025Q3

REPORT INFORMATION
  Report Type: Spontaneous
  Country: US (occurrence: None)
  Receive Date: 20250816
  Receipt Date: 20250816
  Transmission Date: 20251021
  Serious: No
  Sender: FDA-CTU
  Company Number: None

PATIENT
  Age: 48 Year
  Sex: Female

DRUGS (3)
  1. CREST [Suspect]
     Active Substance: SODIUM FLUORIDE
     Indication: Gingival disorder
     Dates: start: 20250809, end: 20250816
  2. LISINOPRIL [Concomitant]
     Active Substance: LISINOPRIL
  3. VITAMINS [Concomitant]
     Active Substance: VITAMINS

REACTIONS (3)
  - Gingival pain [None]
  - Gingival discomfort [None]
  - Toothache [None]

NARRATIVE: CASE EVENT DATE: 20250809
